FAERS Safety Report 6052806-3 (Version None)
Quarter: 2009Q1

REPORT INFORMATION
  Report Type: 
  Country: None (occurrence: None)
  Receive Date: 20090122
  Receipt Date: 20090109
  Transmission Date: 20090719
  Serious: Yes (Hospitalization, Other)
  Sender: FDA-Public Use
  Company Number: 230337K09USA

PATIENT
  Age: 45 Year
  Sex: Female
  Weight: 86 kg

DRUGS (4)
  1. REBIF [Suspect]
     Indication: MULTIPLE SCLEROSIS
     Dosage: 44 MCG, 3 IN 1 WEEKS, SUBCUTAEOUS
     Route: 058
     Dates: start: 20061106
  2. CELEXA [Concomitant]
  3. NORTRIPTYLINE HCL [Concomitant]
  4. TOPAMAX [Concomitant]

REACTIONS (3)
  - ANAEMIA [None]
  - GASTROINTESTINAL INFECTION [None]
  - IMMUNE SYSTEM DISORDER [None]
